FAERS Safety Report 13768774 (Version 6)
Quarter: 2019Q2

REPORT INFORMATION
  Report Type: Report from Study
  Country: US (occurrence: US)
  Receive Date: 20170719
  Receipt Date: 20190504
  Transmission Date: 20190711
  Serious: Yes (Other)
  Sender: FDA-Public Use
  Company Number: PHEH2017US021396

PATIENT
  Sex: Female

DRUGS (2)
  1. AFINITOR [Suspect]
     Active Substance: EVEROLIMUS
     Dosage: 10 MG, UNK
     Route: 048
  2. AFINITOR [Suspect]
     Active Substance: EVEROLIMUS
     Indication: ANGIOMYOLIPOMA
     Dosage: 5 MG, QD
     Route: 048
     Dates: start: 20110711

REACTIONS (11)
  - Angiomyolipoma [Unknown]
  - Hepatic lesion [Unknown]
  - Eye infection [Unknown]
  - Breast mass [Unknown]
  - Renal cell carcinoma [Recovering/Resolving]
  - Alopecia [Unknown]
  - Malignant neoplasm progression [Unknown]
  - Epistaxis [Unknown]
  - Rash [Unknown]
  - Drug level decreased [Unknown]
  - Abdominal distension [Unknown]
